FAERS Safety Report 5116346-8 (Version None)
Quarter: 2006Q3

REPORT INFORMATION
  Report Type: 
  Country: None (occurrence: None)
  Receive Date: 20060927
  Receipt Date: 20060911
  Transmission Date: 20061208
  Serious: Yes (Life-Threatening)
  Sender: FDA-Public Use
  Company Number: DE-ABBOTT-06P-062-0343745-00

PATIENT
  Sex: Male
  Weight: 67 kg

DRUGS (1)
  1. ZEMPLAR [Suspect]
     Indication: HYPERPARATHYROIDISM SECONDARY
     Route: 042
     Dates: start: 20060705, end: 20060810

REACTIONS (4)
  - CARDIAC FAILURE [None]
  - CONFUSIONAL STATE [None]
  - HYPERCALCAEMIA [None]
  - PSYCHOTIC DISORDER [None]
